FAERS Safety Report 21817745 (Version 1)
Quarter: 2023Q1

REPORT INFORMATION
  Report Type: Spontaneous
  Country: US (occurrence: None)
  Receive Date: 20230104
  Receipt Date: 20230104
  Transmission Date: 20230418
  Serious: Yes (unspecified)
  Sender: FDA-Public Use
  Company Number: None

PATIENT
  Age: 32 Year
  Sex: Female

DRUGS (9)
  1. CALCIPOTRIENE 0.005% AND BETAMETHASONE DIPROPIONATE 0.064% [Suspect]
     Active Substance: BETAMETHASONE DIPROPIONATE\CALCIPOTRIENE
     Indication: Seborrhoeic dermatitis
     Dosage: OTHER QUANTITY : 30 DROP(S);?FREQUENCY : TWICE A DAY;?
     Route: 061
     Dates: start: 20220913, end: 20221114
  2. Adderall 30mg [Concomitant]
  3. BUPROPION [Concomitant]
     Active Substance: BUPROPION
  4. Hydroxyzine HCL 10mg [Concomitant]
  5. FLUTICASONE [Concomitant]
     Active Substance: FLUTICASONE
  6. IBUPROFEN [Concomitant]
     Active Substance: IBUPROFEN
  7. Tylenol 500mg (menstrual cramps) [Concomitant]
  8. Clairitin-D 10mg/240mg [Concomitant]
  9. Blink Eye Drops [Concomitant]

REACTIONS (6)
  - Product substitution issue [None]
  - Application site erythema [None]
  - Application site pruritus [None]
  - Condition aggravated [None]
  - Pain [None]
  - Product complaint [None]

NARRATIVE: CASE EVENT DATE: 20220913
